FAERS Safety Report 5215846-X (Version None)
Quarter: 2007Q1

REPORT INFORMATION
  Report Type: 
  Country: None (occurrence: None)
  Receive Date: 20070123
  Receipt Date: 20070119
  Transmission Date: 20070707
  Serious: Yes (Death)
  Sender: FDA-Public Use
  Company Number: BR-GLAXOSMITHKLINE-A0636385A

PATIENT
  Age: 74 Year
  Sex: Male
  Weight: 40 kg

DRUGS (2)
  1. SERETIDE [Suspect]
     Dates: start: 20030101, end: 20070107
  2. UNSPECIFIED MEDICATIONS [Concomitant]

REACTIONS (1)
  - EMPHYSEMA [None]
